FAERS Safety Report 8050395-5 (Version None)
Quarter: 2012Q1

REPORT INFORMATION
  Report Type: 
  Country: None (occurrence: None)
  Receive Date: 20120117
  Receipt Date: 20120104
  Transmission Date: 20120608
  Serious: Yes (Death)
  Sender: FDA-Public Use
  Company Number: NL-ACTELION-A-CH2011-52643

PATIENT
  Sex: Female

DRUGS (3)
  1. TRACLEER [Suspect]
     Dosage: UNK
     Route: 048
  2. TRACLEER [Suspect]
     Dosage: 125 MG, BID
     Route: 048
     Dates: start: 20071023
  3. TRACLEER [Suspect]
     Indication: PULMONARY ARTERIAL HYPERTENSION
     Dosage: 62.5 MG, BID
     Route: 048

REACTIONS (2)
  - SYSTEMIC SCLEROSIS [None]
  - CONCOMITANT DISEASE AGGRAVATED [None]
